FAERS Safety Report 9276150 (Version 4)
Quarter: 2013Q3

REPORT INFORMATION
  Report Type: Spontaneous
  Country: DE (occurrence: DE)
  Receive Date: 20130507
  Receipt Date: 20130705
  Transmission Date: 20140515
  Serious: Yes (Hospitalization, Other)
  Sender: FDA-Public Use
  Company Number: DE-PFIZER INC-2013138532

PATIENT
  Age: 78 Year
  Sex: Female
  Weight: 82.7 kg

DRUGS (12)
  1. PANTOPRAZOLE [Suspect]
     Indication: HELICOBACTER INFECTION
     Dosage: UNK
     Route: 065
  2. PANTOPRAZOLE [Suspect]
     Indication: DUODENAL ULCER
  3. AMOXICILLIN [Concomitant]
     Indication: HELICOBACTER INFECTION
  4. CLARITHROMYCIN [Concomitant]
     Indication: HELICOBACTER INFECTION
     Dosage: UNK
  5. VERAPAMIL [Concomitant]
     Dosage: 40 MG, 2X/DAY
  6. FUROSEMIDE [Concomitant]
     Dosage: 40 MG, 1X/DAY
  7. ENALAPRIL [Concomitant]
     Dosage: 5 MG, 2X/DAY
  8. SILDENAFIL [Concomitant]
     Dosage: 20 MG, 2X/DAY
  9. DIGITOXIN [Concomitant]
     Dosage: 0.07 MG, 1X/DAY
  10. METOCLOPRAMIDE [Concomitant]
     Dosage: UNK; AS REQUIRED
  11. CITALOPRAM [Concomitant]
     Dosage: 20 MG, 1X/DAY
  12. MIRTAZAPINE [Concomitant]
     Dosage: 15 MG, 1X/DAY

REACTIONS (11)
  - Renal failure acute [Recovered/Resolved]
  - Pleural effusion [Unknown]
  - Cardiomegaly [Unknown]
  - Inferior vena cava dilatation [Unknown]
  - Pulmonary fibrosis [Unknown]
  - Inflammation [Recovering/Resolving]
  - Condition aggravated [Recovering/Resolving]
  - Tubulointerstitial nephritis [Recovered/Resolved]
  - Arrhythmia [Unknown]
  - Feeling hot [Unknown]
  - Stasis dermatitis [Unknown]
